FAERS Safety Report 17564926 (Version 1)
Quarter: 2020Q1

REPORT INFORMATION
  Report Type: Spontaneous
  Country: US (occurrence: US)
  Receive Date: 20200320
  Receipt Date: 20200320
  Transmission Date: 20200409
  Serious: Yes (Other)
  Sender: FDA-Public Use
  Company Number: US-LEO PHARMA-328795

PATIENT
  Sex: Female

DRUGS (2)
  1. PICATO [Suspect]
     Active Substance: INGENOL MEBUTATE
     Indication: ACTINIC KERATOSIS
     Route: 061
     Dates: start: 20200307, end: 20200308
  2. PICATO [Suspect]
     Active Substance: INGENOL MEBUTATE
     Indication: SQUAMOUS CELL CARCINOMA

REACTIONS (6)
  - Application site reaction [Not Recovered/Not Resolved]
  - Application site pustules [Not Recovered/Not Resolved]
  - Product administration error [Unknown]
  - Product use in unapproved indication [Unknown]
  - Staphylococcal infection [Not Recovered/Not Resolved]
  - Application site vesicles [Not Recovered/Not Resolved]
